FAERS Safety Report 13023384 (Version 1)
Quarter: 2016Q4

REPORT INFORMATION
  Report Type: Spontaneous
  Country: US (occurrence: US)
  Receive Date: 20161211
  Receipt Date: 20161211
  Transmission Date: 20170207
  Serious: Yes (Hospitalization, Other)
  Sender: FDA-Public Use
  Company Number: None

PATIENT
  Age: 8 Year
  Sex: Female
  Weight: 45 kg

DRUGS (4)
  1. KEPPRA [Suspect]
     Active Substance: LEVETIRACETAM
     Indication: EPILEPSY
     Dosage: ?          QUANTITY:4 TABLET(S);?
     Route: 048
     Dates: start: 20160421
  2. VITAMIN B2 [Concomitant]
     Active Substance: RIBOFLAVIN
  3. VITAMIN B6 [Concomitant]
     Active Substance: PYRIDOXINE HYDROCHLORIDE
  4. VITAMIN D [Concomitant]
     Active Substance: CHOLECALCIFEROL

REACTIONS (3)
  - Speech disorder [None]
  - Feeling abnormal [None]
  - Agitation [None]

NARRATIVE: CASE EVENT DATE: 20161205
